FAERS Safety Report 10301459 (Version 1)
Quarter: 2014Q3

REPORT INFORMATION
  Report Type: Spontaneous
  Country: BR (occurrence: BR)
  Receive Date: 20140714
  Receipt Date: 20140714
  Transmission Date: 20150326
  Serious: Yes (Other)
  Sender: FDA-Public Use
  Company Number: BR-BAYER-2014-101546

PATIENT
  Sex: Female

DRUGS (2)
  1. NEXAVAR [Suspect]
     Active Substance: SORAFENIB
     Indication: THYROID CANCER METASTATIC
     Dosage: UNK
     Route: 048
     Dates: start: 2009
  2. NEXAVAR [Suspect]
     Active Substance: SORAFENIB
     Indication: METASTASES TO BONE
     Dosage: REDUCED DOSE

REACTIONS (3)
  - Thyroid cancer metastatic [None]
  - Diarrhoea [None]
  - Off label use [None]
